FAERS Safety Report 7320714-3 (Version None)
Quarter: 2011Q1

REPORT INFORMATION
  Report Type: 
  Country: None (occurrence: None)
  Receive Date: 20110228
  Receipt Date: 20110223
  Transmission Date: 20110831
  Serious: Yes (Other)
  Sender: FDA-Public Use
  Company Number: US-PFIZER INC-2010024501

PATIENT
  Sex: Female

DRUGS (2)
  1. GEODON [Suspect]
     Indication: DEPRESSION
  2. GEODON [Suspect]
     Indication: ANXIETY
     Dosage: UNK,

REACTIONS (9)
  - DYSTONIA [None]
  - DEPRESSION [None]
  - DIZZINESS [None]
  - PANCREATIC DISORDER [None]
  - TARDIVE DYSKINESIA [None]
  - SPEECH DISORDER [None]
  - LIVER INJURY [None]
  - MENTAL DISORDER [None]
  - MASTICATION DISORDER [None]
